FAERS Safety Report 6466606-3 (Version None)
Quarter: 2009Q4

REPORT INFORMATION
  Report Type: 
  Country: None (occurrence: None)
  Receive Date: 20091118
  Receipt Date: 20090810
  Transmission Date: 20100525
  Serious: Yes (Hospitalization)
  Sender: FDA-Public Use
  Company Number: 2009BI023085

PATIENT
  Age: 51 Year
  Sex: Female

DRUGS (3)
  1. TYSABRI [Suspect]
     Indication: MULTIPLE SCLEROSIS
     Dosage: 300 MG; QM; IV
     Route: 042
     Dates: start: 20080201, end: 20090101
  2. CON MEDS [Concomitant]
  3. AVONEX [Concomitant]

REACTIONS (3)
  - DRUG SPECIFIC ANTIBODY PRESENT [None]
  - MULTIPLE SCLEROSIS RELAPSE [None]
  - ROAD TRAFFIC ACCIDENT [None]
